FAERS Safety Report 5440527-7 (Version None)
Quarter: 2007Q3

REPORT INFORMATION
  Report Type: 
  Country: None (occurrence: None)
  Receive Date: 20070731
  Receipt Date: 20070601
  Transmission Date: 20080115
  Serious: No
  Sender: FDA-Public Use
  Company Number: US200706001857

PATIENT
  Sex: Male

DRUGS (2)
  1. BYETTA [Suspect]
     Dates: start: 20060101
  2. BYETTA [Suspect]
     Dates: start: 20060101

REACTIONS (1)
  - BLOOD GLUCOSE ABNORMAL [None]
